FAERS Safety Report 22236360 (Version 7)
Quarter: 2023Q4

REPORT INFORMATION
  Report Type: Report from Study
  Country: US (occurrence: None)
  Receive Date: 20230420
  Receipt Date: 20231116
  Transmission Date: 20240110
  Serious: Yes (Life-Threatening, Hospitalization, Other)
  Sender: FDA-Public Use
  Company Number: US-ROCHE-3287522

PATIENT
  Age: 69 Year
  Sex: Female
  Weight: 64 kg

DRUGS (71)
  1. BEVACIZUMAB [Suspect]
     Active Substance: BEVACIZUMAB
     Indication: Colorectal cancer metastatic
     Route: 042
     Dates: start: 20220831, end: 20220831
  2. BEVACIZUMAB [Suspect]
     Active Substance: BEVACIZUMAB
     Route: 042
     Dates: start: 20220929, end: 20220929
  3. BEVACIZUMAB [Suspect]
     Active Substance: BEVACIZUMAB
     Route: 042
     Dates: start: 20221019, end: 20221019
  4. BEVACIZUMAB [Suspect]
     Active Substance: BEVACIZUMAB
     Route: 042
     Dates: start: 20221109, end: 20221109
  5. BEVACIZUMAB [Suspect]
     Active Substance: BEVACIZUMAB
     Route: 042
     Dates: start: 20221130, end: 20221130
  6. BEVACIZUMAB [Suspect]
     Active Substance: BEVACIZUMAB
     Route: 042
     Dates: start: 20221214, end: 20221214
  7. BEVACIZUMAB [Suspect]
     Active Substance: BEVACIZUMAB
     Route: 042
     Dates: start: 20221228, end: 20221228
  8. BEVACIZUMAB [Suspect]
     Active Substance: BEVACIZUMAB
     Route: 042
     Dates: start: 20230111, end: 20230111
  9. ZIMBERELIMAB [Suspect]
     Active Substance: ZIMBERELIMAB
     Indication: Colorectal cancer metastatic
     Dosage: ON 31/AUG/2022 SHE RECEIVED LAST DOSE OF ADMINISTRATION DOSE
     Route: 041
     Dates: start: 20220831, end: 20220831
  10. ZIMBERELIMAB [Suspect]
     Active Substance: ZIMBERELIMAB
     Route: 041
     Dates: start: 20221019, end: 20221019
  11. ZIMBERELIMAB [Suspect]
     Active Substance: ZIMBERELIMAB
     Route: 041
     Dates: start: 20221130, end: 20221130
  12. ZIMBERELIMAB [Suspect]
     Active Substance: ZIMBERELIMAB
     Route: 041
     Dates: start: 20221228, end: 20221228
  13. ETRUMADENANT [Suspect]
     Active Substance: ETRUMADENANT
     Indication: Colorectal cancer metastatic
     Dosage: ON 19/SEP/2022 SHE RECEIVED LAST DOSE OF ADMINISTRATION DOSE
     Route: 048
     Dates: start: 20220831, end: 20220919
  14. ETRUMADENANT [Suspect]
     Active Substance: ETRUMADENANT
     Route: 048
     Dates: start: 20221019, end: 20221123
  15. ETRUMADENANT [Suspect]
     Active Substance: ETRUMADENANT
     Route: 048
     Dates: start: 20221202, end: 20221227
  16. ETRUMADENANT [Suspect]
     Active Substance: ETRUMADENANT
     Route: 048
     Dates: start: 20230112, end: 20230112
  17. ETRUMADENANT [Suspect]
     Active Substance: ETRUMADENANT
     Route: 048
     Dates: start: 20221130, end: 20221227
  18. ETRUMADENANT [Suspect]
     Active Substance: ETRUMADENANT
     Route: 048
     Dates: start: 20230111, end: 20230124
  19. OXALIPLATIN [Suspect]
     Active Substance: OXALIPLATIN
     Indication: Colorectal cancer metastatic
     Route: 042
     Dates: start: 20220831, end: 20220831
  20. OXALIPLATIN [Suspect]
     Active Substance: OXALIPLATIN
     Route: 042
     Dates: start: 20220929, end: 20220929
  21. OXALIPLATIN [Suspect]
     Active Substance: OXALIPLATIN
     Route: 042
     Dates: start: 20221019, end: 20221019
  22. OXALIPLATIN [Suspect]
     Active Substance: OXALIPLATIN
     Route: 042
     Dates: start: 20221109, end: 20221109
  23. OXALIPLATIN [Suspect]
     Active Substance: OXALIPLATIN
     Route: 042
     Dates: start: 20221130, end: 20221130
  24. OXALIPLATIN [Suspect]
     Active Substance: OXALIPLATIN
     Route: 042
     Dates: start: 20221214, end: 20221214
  25. OXALIPLATIN [Suspect]
     Active Substance: OXALIPLATIN
     Route: 042
     Dates: start: 20221228, end: 20221228
  26. OXALIPLATIN [Suspect]
     Active Substance: OXALIPLATIN
     Route: 042
     Dates: start: 20230111, end: 20230111
  27. LEUCOVORIN [Suspect]
     Active Substance: LEUCOVORIN\LEUCOVORIN CALCIUM
     Indication: Colorectal cancer metastatic
     Route: 042
     Dates: start: 20220831, end: 20220831
  28. LEUCOVORIN [Suspect]
     Active Substance: LEUCOVORIN\LEUCOVORIN CALCIUM
     Route: 042
     Dates: start: 20220929, end: 20220929
  29. LEUCOVORIN [Suspect]
     Active Substance: LEUCOVORIN\LEUCOVORIN CALCIUM
     Route: 042
     Dates: start: 20220831, end: 20220831
  30. LEUCOVORIN [Suspect]
     Active Substance: LEUCOVORIN\LEUCOVORIN CALCIUM
     Route: 042
     Dates: start: 20220929, end: 20220929
  31. LEUCOVORIN [Suspect]
     Active Substance: LEUCOVORIN\LEUCOVORIN CALCIUM
     Route: 042
     Dates: start: 20221019, end: 20221019
  32. LEUCOVORIN [Suspect]
     Active Substance: LEUCOVORIN\LEUCOVORIN CALCIUM
     Route: 042
     Dates: start: 20221109, end: 20221109
  33. FLUOROURACIL [Suspect]
     Active Substance: FLUOROURACIL
     Indication: Colorectal cancer metastatic
     Route: 040
     Dates: start: 20220831, end: 20220831
  34. FLUOROURACIL [Suspect]
     Active Substance: FLUOROURACIL
     Route: 042
     Dates: start: 20220831, end: 20220831
  35. FLUOROURACIL [Suspect]
     Active Substance: FLUOROURACIL
     Route: 040
     Dates: start: 20220929, end: 20220929
  36. FLUOROURACIL [Suspect]
     Active Substance: FLUOROURACIL
     Route: 042
     Dates: start: 20220929, end: 20220929
  37. FLUOROURACIL [Suspect]
     Active Substance: FLUOROURACIL
     Route: 042
     Dates: start: 20221019, end: 20221019
  38. FLUOROURACIL [Suspect]
     Active Substance: FLUOROURACIL
     Route: 042
     Dates: start: 20221019, end: 20221020
  39. FLUOROURACIL [Suspect]
     Active Substance: FLUOROURACIL
     Route: 042
     Dates: start: 20221109, end: 20221109
  40. FLUOROURACIL [Suspect]
     Active Substance: FLUOROURACIL
     Route: 042
     Dates: start: 20221109, end: 20221109
  41. FLUOROURACIL [Suspect]
     Active Substance: FLUOROURACIL
     Route: 042
     Dates: start: 20221130, end: 20221130
  42. FLUOROURACIL [Suspect]
     Active Substance: FLUOROURACIL
     Route: 042
     Dates: start: 20221214, end: 20221214
  43. FLUOROURACIL [Suspect]
     Active Substance: FLUOROURACIL
     Route: 042
     Dates: start: 20221228, end: 20221228
  44. FLUOROURACIL [Suspect]
     Active Substance: FLUOROURACIL
     Route: 042
     Dates: start: 20230111, end: 20230111
  45. ADDERALL [Concomitant]
     Active Substance: AMPHETAMINE ASPARTATE\AMPHETAMINE SULFATE\DEXTROAMPHETAMINE SACCHARATE\DEXTROAMPHETAMINE SULFATE
     Route: 065
     Dates: start: 20220831
  46. DECADRON [Concomitant]
     Active Substance: DEXAMETHASONE
     Route: 065
     Dates: start: 20220727
  47. COLESTID [Concomitant]
     Active Substance: COLESTIPOL HYDROCHLORIDE
     Route: 065
     Dates: start: 20220718
  48. PROTONIX [Concomitant]
     Active Substance: PANTOPRAZOLE SODIUM
     Route: 065
     Dates: start: 20220311
  49. ATIVAN [Concomitant]
     Active Substance: LORAZEPAM
     Route: 065
     Dates: start: 20220311
  50. PERCOCET [Concomitant]
     Active Substance: ACETAMINOPHEN\OXYCODONE HYDROCHLORIDE
     Dates: start: 20220311
  51. CLARITIN [Concomitant]
     Active Substance: LORATADINE
     Dates: start: 20211114
  52. NEURONTIN [Concomitant]
     Active Substance: GABAPENTIN
     Dates: start: 20171101
  53. IBUPROFEN [Concomitant]
     Active Substance: IBUPROFEN
  54. LOMOTIL [Concomitant]
     Active Substance: ATROPINE SULFATE\DIPHENOXYLATE HYDROCHLORIDE
     Dates: start: 20220315
  55. LOMOTIL [Concomitant]
     Active Substance: ATROPINE SULFATE\DIPHENOXYLATE HYDROCHLORIDE
     Dates: start: 20220901
  56. LEVOTHYROXINE [Concomitant]
     Active Substance: LEVOTHYROXINE
     Dates: start: 20170913, end: 20230111
  57. ACETAMINOPHEN\OXYCODONE HYDROCHLORIDE [Concomitant]
     Active Substance: ACETAMINOPHEN\OXYCODONE HYDROCHLORIDE
  58. MORPHINE [Concomitant]
     Active Substance: MORPHINE
  59. POTASSIUM CHLORIDE [Concomitant]
     Active Substance: POTASSIUM CHLORIDE
  60. VENLAFAXINE [Concomitant]
     Active Substance: VENLAFAXINE HYDROCHLORIDE
  61. PROCHLORPERAZINE [Concomitant]
     Active Substance: PROCHLORPERAZINE
  62. OLANZAPINE [Concomitant]
     Active Substance: OLANZAPINE
     Dates: start: 20220727
  63. TBO FILGRASTIM [Concomitant]
     Dates: start: 20221003, end: 20221102
  64. GABAPENTIN [Concomitant]
     Active Substance: GABAPENTIN
     Dates: start: 20171101
  65. DEXAMETHASONE [Concomitant]
     Active Substance: DEXAMETHASONE
     Dates: start: 20220727
  66. SYNTHROID [Concomitant]
     Active Substance: LEVOTHYROXINE SODIUM
     Dates: start: 20170913, end: 20230111
  67. LORATADINE HYDROCHLORIDE [Concomitant]
  68. PANTOPRAZOLE [Concomitant]
     Active Substance: PANTOPRAZOLE
     Dates: start: 20220311
  69. COMPAZINE [Concomitant]
     Active Substance: PROCHLORPERAZINE MALEATE
     Dates: start: 20220901, end: 20220901
  70. COLESTIPOL [Concomitant]
     Active Substance: COLESTIPOL
     Dates: start: 20220604, end: 20221111
  71. LORAZEPAM [Concomitant]
     Active Substance: LORAZEPAM

REACTIONS (6)
  - Febrile neutropenia [Recovered/Resolved]
  - Fatigue [Recovered/Resolved]
  - White blood cell count decreased [Recovered/Resolved]
  - Hyponatraemia [Recovered/Resolved]
  - Diarrhoea [Recovered/Resolved]
  - Somnolence [Recovered/Resolved]

NARRATIVE: CASE EVENT DATE: 20220914
